FAERS Safety Report 10310162 (Version 1)
Quarter: 2014Q3

REPORT INFORMATION
  Report Type: Spontaneous
  Country: US (occurrence: None)
  Receive Date: 20140716
  Receipt Date: 20140716
  Transmission Date: 20150326
  Serious: Yes (Death)
  Sender: FDA-Public Use
  Company Number: None

PATIENT
  Age: 64 Year
  Sex: Male

DRUGS (1)
  1. CAPECITABINE [Suspect]
     Active Substance: CAPECITABINE
     Indication: GASTRIC CANCER
     Dosage: 500 MG, TAKE 1 IN AM AND 2 IN PM, 14 DAY ON, 7 OFF, ORAL
     Route: 048
     Dates: start: 20140620, end: 201407

REACTIONS (1)
  - Death [None]

NARRATIVE: CASE EVENT DATE: 20140714
